FAERS Safety Report 8596309-0 (Version None)
Quarter: 2012Q3

REPORT INFORMATION
  Report Type: 
  Country: None (occurrence: None)
  Receive Date: 20120815
  Receipt Date: 20120809
  Transmission Date: 20120928
  Serious: Yes (Hospitalization, Other)
  Sender: FDA-Public Use
  Company Number: KR-ELI_LILLY_AND_COMPANY-KR201208003721

PATIENT
  Age: 75 Year
  Sex: Male

DRUGS (1)
  1. FORTEO [Suspect]
     Indication: OSTEOPOROSIS
     Dosage: 20 UG, QD
     Route: 058
     Dates: start: 20120703, end: 20120709

REACTIONS (4)
  - VOMITING [None]
  - LOSS OF CONSCIOUSNESS [None]
  - DIZZINESS [None]
  - NAUSEA [None]
